FAERS Safety Report 5660869-X (Version None)
Quarter: 2008Q1

REPORT INFORMATION
  Report Type: 
  Country: None (occurrence: None)
  Receive Date: 20080311
  Receipt Date: 20080306
  Transmission Date: 20080703
  Serious: Yes (Other)
  Sender: FDA-Public Use
  Company Number: BR-ASTRAZENECA-2007UW20390

PATIENT
  Age: 70 Year
  Sex: Female
  Weight: 44 kg

DRUGS (3)
  1. ATACAND [Suspect]
     Indication: HYPERTENSION
     Route: 048
     Dates: start: 20070603
  2. PURAN T4 [Interacting]
     Indication: HYPOTHYROIDISM
     Route: 048
     Dates: start: 20070620
  3. DILTIAZEM CHLORIDRATE [Concomitant]

REACTIONS (7)
  - BONE PAIN [None]
  - COUGH [None]
  - DRUG INTERACTION [None]
  - DYSPHONIA [None]
  - DYSPNOEA [None]
  - MALAISE [None]
  - WEIGHT DECREASED [None]
